FAERS Safety Report 6534479-6 (Version None)
Quarter: 2010Q1

REPORT INFORMATION
  Report Type: 
  Country: None (occurrence: None)
  Receive Date: 20100112
  Receipt Date: 20100105
  Transmission Date: 20100710
  Serious: Yes (Death, Hospitalization, Other)
  Sender: FDA-Public Use
  Company Number: FR-BRISTOL-MYERS SQUIBB COMPANY-14924922

PATIENT
  Age: 67 Year
  Sex: Male

DRUGS (5)
  1. TAXOL [Suspect]
     Indication: LUNG CANCER METASTATIC
     Dosage: 27JUL09,24AUG09:371.25 MG ,16SEP09:393.5 MG
     Route: 042
     Dates: start: 20090727, end: 20090916
  2. CARBOPLATIN [Suspect]
     Dosage: 1DF-6AUC, 27JUL:571.72 MG, 24AUG:482 MG,16SEP:611MG
     Route: 042
     Dates: start: 20090727, end: 20090916
  3. ZOPHREN [Concomitant]
     Indication: PREMEDICATION
  4. METHYLPREDNISOLONE [Concomitant]
     Indication: PREMEDICATION
  5. POLARAMINE [Concomitant]
     Indication: PREMEDICATION

REACTIONS (7)
  - ANAEMIA [None]
  - CHOLESTASIS [None]
  - DEATH [None]
  - ERYTHEMA [None]
  - PHOTOSENSITIVITY REACTION [None]
  - SKIN EXFOLIATION [None]
  - THROMBOCYTOPENIA [None]
